FAERS Safety Report 10987043 (Version 1)
Quarter: 2015Q2

REPORT INFORMATION
  Report Type: Spontaneous
  Country: US (occurrence: US)
  Receive Date: 20150404
  Receipt Date: 20150404
  Transmission Date: 20150821
  Serious: No
  Sender: FDA-Public Use
  Company Number: US-SA-2015SA028859

PATIENT
  Age: 72 Year
  Sex: Female

DRUGS (4)
  1. ALLEGRA-D [Suspect]
     Active Substance: FEXOFENADINE\PSEUDOEPHEDRINE
     Indication: LACRIMATION INCREASED
     Dosage: DOSE:180MG/ 240MG
     Route: 048
     Dates: start: 20150302, end: 20150304
  2. ALLEGRA-D [Suspect]
     Active Substance: FEXOFENADINE\PSEUDOEPHEDRINE
     Indication: RHINORRHOEA
     Dosage: DOSE:180MG/ 240MG
     Route: 048
     Dates: start: 20150302, end: 20150304
  3. ALLEGRA-D [Suspect]
     Active Substance: FEXOFENADINE\PSEUDOEPHEDRINE
     Indication: HYPERSENSITIVITY
     Dosage: DOSE:180MG/ 240MG
     Route: 048
     Dates: start: 20150302, end: 20150304
  4. ALLEGRA-D [Suspect]
     Active Substance: FEXOFENADINE\PSEUDOEPHEDRINE
     Indication: SNEEZING
     Dosage: DOSE:180MG/ 240MG
     Route: 048
     Dates: start: 20150302, end: 20150304

REACTIONS (1)
  - Drug ineffective [Unknown]
